FAERS Safety Report 20370585 (Version 3)
Quarter: 2022Q1

REPORT INFORMATION
  Report Type: Report from Study
  Country: TR (occurrence: None)
  Receive Date: 20220124
  Receipt Date: 20220302
  Transmission Date: 20220423
  Serious: Yes (Hospitalization)
  Sender: FDA-Public Use
  Company Number: TR-ROCHE-3004671

PATIENT
  Age: 67 Year
  Sex: Female
  Weight: 68.2 kg

DRUGS (16)
  1. TIRAGOLUMAB [Suspect]
     Active Substance: TIRAGOLUMAB
     Indication: Small cell lung cancer
     Dosage: DOSE LAST STUDY DRUG ADMIN PRIOR AE IS 600 MGDOSE LAST STUDY DRUG ADMIN PRIOR SAE IS 600 MG
     Route: 042
     Dates: start: 20210308
  2. ATEZOLIZUMAB [Suspect]
     Active Substance: ATEZOLIZUMAB
     Indication: Small cell lung cancer
     Dosage: DOSE LAST STUDY DRUG ADMIN PRIOR AE/SAE IS 1200 MG ON 29/DEC/2021.
     Route: 042
     Dates: start: 20210308
  3. CARBOPLATIN [Suspect]
     Active Substance: CARBOPLATIN
     Indication: Product used for unknown indication
     Dosage: DOSE LAST STUDY DRUG ADMIN PRIOR AE/SAE IS 282 MG ON 10/MAY/2021
     Route: 042
     Dates: start: 20210308
  4. ETOPOSIDE [Suspect]
     Active Substance: ETOPOSIDE
     Indication: Product used for unknown indication
     Dosage: DOSE LAST STUDY DRUG ADMIN PRIOR AE IS 90 MG WAS ON 29/DEC/2021
     Route: 042
     Dates: start: 20210308
  5. ASPIRIN [Concomitant]
     Active Substance: ASPIRIN
     Indication: Hypertension
     Route: 048
     Dates: start: 2011
  6. GLIFOR (TURKEY) [Concomitant]
     Indication: Diabetes mellitus
     Route: 048
     Dates: start: 2011
  7. METOPROLOL [Concomitant]
     Active Substance: METOPROLOL
     Indication: Hypertension
     Route: 048
     Dates: start: 2011
  8. CIPRALEX [Concomitant]
     Active Substance: ESCITALOPRAM OXALATE
     Indication: Depression
     Route: 048
     Dates: start: 2011
  9. ENALAPRIL MALEATE\LERCANIDIPINE HYDROCHLORIDE [Concomitant]
     Active Substance: ENALAPRIL MALEATE\LERCANIDIPINE HYDROCHLORIDE
     Indication: Hypertension
     Route: 048
     Dates: start: 2011
  10. LANSOPRAZOLE [Concomitant]
     Active Substance: LANSOPRAZOLE
     Route: 048
  11. PALONOSETRON HYDROCHLORIDE [Concomitant]
     Active Substance: PALONOSETRON HYDROCHLORIDE
     Indication: Premedication
     Route: 042
     Dates: start: 20210308
  12. DOLADAMON [Concomitant]
     Indication: Myalgia
     Route: 048
     Dates: start: 20210805
  13. LEVOTHYROXINE SODIUM [Concomitant]
     Active Substance: LEVOTHYROXINE SODIUM
     Indication: Hypothyroidism
     Route: 048
     Dates: start: 20210916
  14. DERMABEL (TURKEY) [Concomitant]
     Indication: Rash
     Route: 061
     Dates: start: 20210916
  15. BEMIKS [Concomitant]
     Indication: Supportive care
     Route: 042
     Dates: start: 20220211, end: 20220211
  16. CYANOCOBALAMIN [Concomitant]
     Active Substance: CYANOCOBALAMIN
     Indication: Supportive care
     Dosage: 1000
     Route: 042
     Dates: start: 20220211, end: 20220211

REACTIONS (2)
  - Loss of consciousness [Recovering/Resolving]
  - Alanine aminotransferase increased [Recovered/Resolved]

NARRATIVE: CASE EVENT DATE: 20220114
